FAERS Safety Report 5088331-6 (Version None)
Quarter: 2006Q3

REPORT INFORMATION
  Report Type: 
  Country: None (occurrence: None)
  Receive Date: 20060821
  Receipt Date: 20060810
  Transmission Date: 20061208
  Serious: Yes (Other)
  Sender: FDA-Public Use
  Company Number: 2006BI011245

PATIENT
  Age: 56 Year
  Sex: Male
  Weight: 95.2554 kg

DRUGS (2)
  1. AVONEX [Suspect]
     Indication: MULTIPLE SCLEROSIS
     Dosage: 30 UG; QW; IM
     Route: 030
     Dates: start: 20060101, end: 20060726
  2. STEROID [Concomitant]

REACTIONS (6)
  - BLADDER CANCER [None]
  - CATHETER SITE PAIN [None]
  - CONSTIPATION [None]
  - HAEMATURIA [None]
  - INFLUENZA LIKE ILLNESS [None]
  - PENILE PAIN [None]
